FAERS Safety Report 9159751 (Version 1)
Quarter: 2013Q1

REPORT INFORMATION
  Report Type: Spontaneous
  Country: EG (occurrence: EG)
  Receive Date: 20130313
  Receipt Date: 20130313
  Transmission Date: 20140127
  Serious: Yes (Other)
  Sender: FDA-Public Use
  Company Number: EG-ELI_LILLY_AND_COMPANY-EG201303003432

PATIENT
  Sex: Female

DRUGS (2)
  1. LISPRO [Suspect]
     Indication: DIABETES MELLITUS
     Dosage: UNK, UNKNOWN
     Route: 058
     Dates: start: 20121110
  2. LISPRO [Suspect]
     Dosage: UNK, UNKNOWN
     Route: 058
     Dates: end: 20121210

REACTIONS (2)
  - Convulsion [Not Recovered/Not Resolved]
  - Hyperphagia [Not Recovered/Not Resolved]
